FAERS Safety Report 9202320 (Version 2)
Quarter: 2013Q4

REPORT INFORMATION
  Report Type: Spontaneous
  Country: US (occurrence: US)
  Receive Date: 20130401
  Receipt Date: 20131202
  Transmission Date: 20140711
  Serious: Yes (Other)
  Sender: FDA-Public Use
  Company Number: US-BAYER-2013-038657

PATIENT
  Age: 50 Year
  Sex: Female

DRUGS (7)
  1. YAZ [Suspect]
     Dosage: UNK
  2. YASMIN [Suspect]
     Dosage: UNK
  3. PAROXETINE HYDROCHLORIDE [Concomitant]
     Dosage: 20 MG, UNK
     Dates: start: 20071205, end: 20080706
  4. ATENOLOL [Concomitant]
     Dosage: 25 MG, UNK
     Dates: start: 20080427, end: 20080626
  5. PROTONIX [Concomitant]
     Dosage: UNK
     Dates: start: 20080709
  6. PAXIL [Concomitant]
     Dosage: UNK
     Dates: start: 20080709
  7. LEVOXYL [Concomitant]
     Dosage: UNK
     Dates: start: 20080709

REACTIONS (5)
  - Gallbladder injury [None]
  - Cholecystitis chronic [None]
  - Injury [None]
  - Pain [None]
  - Pain [None]
